FAERS Safety Report 4372757-X (Version None)
Quarter: 2004Q2

REPORT INFORMATION
  Report Type: 
  Country: None (occurrence: None)
  Receive Date: 20040526
  Receipt Date: 20040401
  Transmission Date: 20050107
  Serious: No
  Sender: FDA-Public Use
  Company Number: 2004-DE-01761GD

PATIENT
  Age: 40 Year
  Sex: Female

DRUGS (1)
  1. PREDNISONE TAB [Suspect]
     Indication: PACHYMENINGITIS
     Dosage: 10 MG (NR) , NR

REACTIONS (6)
  - AMNESIA [None]
  - BRAIN OEDEMA [None]
  - CONDITION AGGRAVATED [None]
  - HEADACHE [None]
  - MEMORY IMPAIRMENT [None]
  - MENINGEAL DISORDER [None]
